FAERS Safety Report 4944130-4 (Version None)
Quarter: 2006Q1

REPORT INFORMATION
  Report Type: 
  Country: None (occurrence: None)
  Receive Date: 20060309
  Receipt Date: 20060303
  Transmission Date: 20060701
  Serious: No
  Sender: FDA-Public Use
  Company Number: 006778

PATIENT
  Age: 30 Year
  Sex: Female

DRUGS (2)
  1. CLARAVIS [Suspect]
     Indication: ACNE
     Dosage: 1 CAPS., QD, ORAL
     Route: 048
     Dates: start: 20060101, end: 20060101
  2. NEXIUM [Concomitant]

REACTIONS (3)
  - DRUG EXPOSURE BEFORE PREGNANCY [None]
  - LIP DRY [None]
  - UNINTENDED PREGNANCY [None]
